FAERS Safety Report 24538034 (Version 1)
Quarter: 2024Q4

REPORT INFORMATION
  Report Type: Spontaneous
  Country: DE (occurrence: DE)
  Receive Date: 20241023
  Receipt Date: 20241023
  Transmission Date: 20250114
  Serious: Yes (Hospitalization, Disabling, Other)
  Sender: SANDOZ
  Company Number: DE-NOVPHSZ-PHHY2019DE047303

PATIENT
  Age: 53 Year
  Sex: Female
  Weight: 69 kg

DRUGS (2)
  1. AMLODIPINE [Suspect]
     Active Substance: AMLODIPINE BESYLATE
     Indication: Hypertension
     Dosage: 5 MG, UNK
     Route: 048
     Dates: start: 20190111, end: 20190117
  2. VITAMIN B DUO [Concomitant]
     Indication: Product used for unknown indication
     Dosage: 2 UG, QD
     Route: 048
     Dates: start: 20190104, end: 20190121

REACTIONS (5)
  - Auditory disorder [Unknown]
  - Dysaesthesia [Unknown]
  - Vestibular neuronitis [Unknown]
  - Gait disturbance [Unknown]
  - Dizziness [Unknown]

NARRATIVE: CASE EVENT DATE: 20190101
